FAERS Safety Report 8561418-9 (Version None)
Quarter: 2012Q3

REPORT INFORMATION
  Report Type: 
  Country: None (occurrence: None)
  Receive Date: 20120802
  Receipt Date: 20120730
  Transmission Date: 20120928
  Serious: Yes (Other)
  Sender: FDA-Public Use
  Company Number: US-GLAXOSMITHKLINE-A0987913A

PATIENT
  Sex: Male

DRUGS (1)
  1. WELLBUTRIN [Suspect]
     Indication: PRODUCT USED FOR UNKNOWN INDICATION
     Route: 048

REACTIONS (6)
  - SUICIDAL IDEATION [None]
  - CHEST PAIN [None]
  - MYOCARDIAL INFARCTION [None]
  - TREMOR [None]
  - CONVULSION [None]
  - SUICIDE ATTEMPT [None]
